FAERS Safety Report 6869451-X (Version None)
Quarter: 2010Q3

REPORT INFORMATION
  Report Type: 
  Country: None (occurrence: None)
  Receive Date: 20100722
  Receipt Date: 20080805
  Transmission Date: 20110219
  Serious: No
  Sender: FDA-Public Use
  Company Number: US-PFIZER INC-2008064788

PATIENT
  Sex: Male
  Weight: 99.1 kg

DRUGS (12)
  1. CHANTIX [Suspect]
     Indication: SMOKING CESSATION THERAPY
     Route: 048
     Dates: start: 20071001
  2. LIDOCAINE HYDROCHLORIDE [Concomitant]
  3. ALBUTEROL [Concomitant]
  4. AZITHROMYCIN [Concomitant]
  5. TRAZODONE [Concomitant]
  6. CELEBREX [Concomitant]
  7. CIALIS [Concomitant]
  8. VIAGRA [Concomitant]
  9. ULTRAM [Concomitant]
  10. MUSCLE RELAXANTS [Concomitant]
  11. DARVOCET [Concomitant]
  12. COUGH AND COLD PREPARATIONS [Concomitant]

REACTIONS (1)
  - DRUG INEFFECTIVE [None]
